FAERS Safety Report 9280568 (Version 2)
Quarter: 2014Q4

REPORT INFORMATION
  Report Type: Report from Study
  Country: DE (occurrence: DE)
  Receive Date: 20130509
  Receipt Date: 20141210
  Transmission Date: 20150529
  Serious: Yes (Death, Hospitalization)
  Sender: FDA-Public Use
  Company Number: DE-ROCHE-1222546

PATIENT
  Age: 53 Year
  Sex: Male
  Weight: 110 kg

DRUGS (18)
  1. VITAMIN B DUO [Concomitant]
     Indication: PROPHYLAXIS
     Route: 048
     Dates: start: 20121115, end: 20130326
  2. BEVACIZUMAB [Suspect]
     Active Substance: BEVACIZUMAB
     Indication: COLORECTAL CANCER
     Dosage: 555- 510 MG
     Route: 042
     Dates: start: 20121102, end: 20130214
  3. OXALIPLATIN. [Suspect]
     Active Substance: OXALIPLATIN
     Indication: COLORECTAL CANCER
     Dosage: 195.5 - 127.5 MG
     Route: 042
     Dates: start: 20121102, end: 20130214
  4. LACTULOSE. [Concomitant]
     Active Substance: LACTULOSE
     Indication: DIARRHOEA
     Route: 065
     Dates: start: 20121115, end: 20130326
  5. AMLODIPIN [Concomitant]
     Active Substance: AMLODIPINE BESYLATE
     Indication: HYPERTENSION
     Route: 065
     Dates: end: 20130326
  6. HEPARIN [Concomitant]
     Active Substance: HEPARIN SODIUM
     Indication: THROMBOSIS PROPHYLAXIS
     Route: 058
     Dates: start: 20130304, end: 20130326
  7. FLUOROURACIL. [Suspect]
     Active Substance: FLUOROURACIL
     Route: 042
     Dates: start: 20121102, end: 20130215
  8. SIMVASTIN [Concomitant]
     Active Substance: SIMVASTATIN
     Indication: HYPERCHOLESTEROLAEMIA
     Route: 065
  9. CEFUROXIM [Concomitant]
     Active Substance: CEFUROXIME
     Indication: INFECTION
     Route: 042
     Dates: start: 20130110, end: 20130117
  10. SIMETHICONE [Concomitant]
     Active Substance: DIMETHICONE\SILICON DIOXIDE\SIMETHICONE
     Indication: PAIN
     Route: 048
     Dates: start: 20121115, end: 20130326
  11. RAMIPRIL. [Concomitant]
     Active Substance: RAMIPRIL
     Indication: HYPERTENSION
     Route: 065
  12. KALIUM VERLA [Concomitant]
     Indication: HYPOKALAEMIA
     Route: 065
     Dates: start: 20121115, end: 20130326
  13. NOVALGIN [Concomitant]
     Active Substance: METAMIZOLE SODIUM
     Indication: PAIN
     Dosage: AS REQUIRED
     Route: 048
     Dates: end: 20130326
  14. CARVEDILOL. [Concomitant]
     Active Substance: CARVEDILOL
     Indication: HYPERTENSION
     Route: 065
  15. CIPRALEX [Concomitant]
     Active Substance: ESCITALOPRAM OXALATE
     Indication: DEPRESSION
     Route: 065
     Dates: start: 20130304, end: 20130326
  16. ARCOXIA [Concomitant]
     Active Substance: ETORICOXIB
     Indication: OSTEOARTHRITIS
     Route: 065
     Dates: start: 20130304, end: 20130326
  17. FLUOROURACIL. [Suspect]
     Active Substance: FLUOROURACIL
     Indication: COLORECTAL CANCER
     Dosage: 920- 800 MG
     Route: 042
     Dates: start: 20121102, end: 20130214
  18. FOLINIC ACID [Concomitant]
     Active Substance: LEUCOVORIN
     Indication: COLORECTAL CANCER
     Dosage: 400-460 MG ON D1-D2
     Route: 042
     Dates: start: 20121102, end: 20130215

REACTIONS (4)
  - Ascites [Fatal]
  - Malignant neoplasm progression [Fatal]
  - Multi-organ failure [Fatal]
  - Hepatic failure [Fatal]

NARRATIVE: CASE EVENT DATE: 20130304
